FAERS Safety Report 14869114 (Version 2)
Quarter: 2018Q2

REPORT INFORMATION
  Report Type: Spontaneous
  Country: US (occurrence: US)
  Receive Date: 20180509
  Receipt Date: 20180606
  Transmission Date: 20180711
  Serious: Yes (Other)
  Sender: FDA-Public Use
  Company Number: US-009507513-1805USA001567

PATIENT
  Age: 52 Year
  Sex: Female

DRUGS (5)
  1. KEYTRUDA [Suspect]
     Active Substance: PEMBROLIZUMAB
     Indication: METASTATIC MALIGNANT MELANOMA
     Dosage: 2 MG/KG, Q3W
     Route: 042
     Dates: start: 201502, end: 2015
  2. KEYTRUDA [Suspect]
     Active Substance: PEMBROLIZUMAB
     Dosage: 2 MG/KG, Q3W
     Dates: start: 20170206
  3. KEYTRUDA [Suspect]
     Active Substance: PEMBROLIZUMAB
     Dosage: 2 MG/KG, Q3W
     Route: 042
     Dates: start: 20160707, end: 20160728
  4. KEYTRUDA [Suspect]
     Active Substance: PEMBROLIZUMAB
     Dosage: 2 MG/KG, Q3W
     Route: 042
     Dates: end: 20160418
  5. KEYTRUDA [Suspect]
     Active Substance: PEMBROLIZUMAB
     Dosage: 2 MG, Q3W
     Route: 042
     Dates: start: 20160912, end: 20161003

REACTIONS (7)
  - Pancytopenia [Recovered/Resolved]
  - Vitiligo [Recovered/Resolved]
  - Gastritis [Unknown]
  - Colitis [Unknown]
  - Immune-mediated hepatitis [Recovered/Resolved]
  - Synovitis [Unknown]
  - Pancytopenia [Unknown]

NARRATIVE: CASE EVENT DATE: 2015
